FAERS Safety Report 10026193 (Version 2)
Quarter: 2014Q1

REPORT INFORMATION
  Report Type: Spontaneous
  Country: US (occurrence: US)
  Receive Date: 20140320
  Receipt Date: 20140320
  Transmission Date: 20141002
  Serious: No
  Sender: FDA-Public Use
  Company Number: US-ALLERGAN-1317264US

PATIENT
  Age: 85 Year
  Sex: Male

DRUGS (2)
  1. LUMIGAN 0.01% [Suspect]
     Indication: POSTOPERATIVE CARE
     Dosage: 2 GTT, QHS
     Route: 047
  2. SYSTANE [Concomitant]
     Indication: POSTOPERATIVE CARE
     Dosage: 2 GTT, PRN
     Route: 047

REACTIONS (6)
  - Aphonia [Not Recovered/Not Resolved]
  - Throat tightness [Not Recovered/Not Resolved]
  - Rhinorrhoea [Not Recovered/Not Resolved]
  - Increased upper airway secretion [Not Recovered/Not Resolved]
  - Oropharyngeal pain [Not Recovered/Not Resolved]
  - Off label use [Unknown]
